FAERS Safety Report 8539916-3 (Version None)
Quarter: 2012Q3

REPORT INFORMATION
  Report Type: 
  Country: None (occurrence: None)
  Receive Date: 20120726
  Receipt Date: 20120711
  Transmission Date: 20120928
  Serious: Yes (Hospitalization)
  Sender: FDA-Public Use
  Company Number: GB-WATSON-2012-12443

PATIENT
  Sex: Male
  Weight: 100 kg

DRUGS (3)
  1. CODEINE [Concomitant]
     Indication: PAIN
     Dosage: 30MG UNKNOWN INTERVAL (DRUG CONTINUED)
     Route: 048
     Dates: start: 20080101
  2. AMLODIPINE [Suspect]
     Indication: HYPERTENSION
     Dosage: 5 MG, UNKNOWN INTERVAL
     Route: 048
     Dates: start: 20120613, end: 20120628
  3. ACETAMINOPHEN [Concomitant]
     Indication: PAIN
     Dosage: 500 MG, UNKNOWN INTERVAL. TREATMENT CONTINUED
     Route: 048
     Dates: start: 20080101

REACTIONS (1)
  - TESTICULAR SWELLING [None]
